FAERS Safety Report 10021482 (Version 1)
Quarter: 2014Q1

REPORT INFORMATION
  Report Type: Spontaneous
  Country: JP (occurrence: None)
  Receive Date: 20140313
  Receipt Date: 20140313
  Transmission Date: 20141002
  Serious: Yes (Other)
  Sender: FDA-Public Use
  Company Number: 2014P1001999

PATIENT
  Age: 86 Year
  Sex: Female

DRUGS (4)
  1. ISONIAZID [Suspect]
     Indication: PULMONARY TUBERCULOSIS
  2. ISONIAZID [Suspect]
     Indication: PERITONEAL TUBERCULOSIS
  3. RIFAMPICIN [Concomitant]
  4. ETHAMBUTOL [Concomitant]

REACTIONS (6)
  - Hallucinations, mixed [None]
  - Grand mal convulsion [None]
  - Blood pressure increased [None]
  - Heart rate increased [None]
  - Respiratory rate increased [None]
  - Vitamin B6 deficiency [None]
